FAERS Safety Report 7622232-1 (Version None)
Quarter: 2011Q3

REPORT INFORMATION
  Report Type: 
  Country: None (occurrence: None)
  Receive Date: 20110720
  Receipt Date: 20110622
  Transmission Date: 20111222
  Serious: Yes (Hospitalization, Other)
  Sender: FDA-Public Use
  Company Number: US-BAYER-2010-008988

PATIENT
  Age: 20 Year
  Sex: Female
  Weight: 77 kg

DRUGS (6)
  1. YAZ [Suspect]
     Indication: PREMENSTRUAL SYNDROME
  2. ANTIBIOTICS [Concomitant]
     Dosage: UNK
     Dates: start: 20070101
  3. YAZ [Suspect]
     Indication: ACNE
     Dates: start: 20070101, end: 20080101
  4. YAZ [Suspect]
     Indication: CONTRACEPTION
  5. IBUPROFEN [Concomitant]
     Dosage: UNK
     Dates: start: 20070101
  6. DEPO-PROVERA [Concomitant]

REACTIONS (5)
  - GALLBLADDER DISORDER [None]
  - CHOLECYSTITIS CHRONIC [None]
  - PAIN [None]
  - INJURY [None]
  - PANCREATITIS [None]
